FAERS Safety Report 6769271-0 (Version None)
Quarter: 2010Q2

REPORT INFORMATION
  Report Type: 
  Country: None (occurrence: None)
  Receive Date: 20100615
  Receipt Date: 20100607
  Transmission Date: 20101027
  Serious: Yes (Other)
  Sender: FDA-Public Use
  Company Number: DE-JNJFOC-20100603037

PATIENT
  Age: 46 Year
  Sex: Male
  Weight: 117 kg

DRUGS (6)
  1. RISPERDAL [Suspect]
     Indication: DRUG USE FOR UNKNOWN INDICATION
     Route: 065
  2. RISPERDAL [Suspect]
     Route: 065
  3. SEROQUEL [Suspect]
     Indication: DRUG USE FOR UNKNOWN INDICATION
     Route: 048
  4. SOLIAN [Suspect]
     Indication: DRUG USE FOR UNKNOWN INDICATION
     Route: 048
  5. FUROSEMID [Concomitant]
     Route: 048
  6. CIPRAMIL [Concomitant]
     Route: 048

REACTIONS (2)
  - HYPERLIPIDAEMIA [None]
  - WEIGHT INCREASED [None]
